FAERS Safety Report 4616062-2 (Version None)
Quarter: 2005Q1

REPORT INFORMATION
  Report Type: 
  Country: None (occurrence: None)
  Receive Date: 20050321
  Receipt Date: 20050311
  Transmission Date: 20050727
  Serious: Yes (Other)
  Sender: FDA-Public Use
  Company Number: 2005-03-0855

PATIENT
  Age: 66 Year
  Sex: Female

DRUGS (11)
  1. CELESTAMINE TAB [Suspect]
     Indication: PRURITUS
     Dosage: 6-3-2 TABS ORAL; 6 TABS ORAL; 3 TABS ORA; 2 TABS ORAL
     Route: 048
     Dates: start: 20050206, end: 20050210
  2. CELESTAMINE TAB [Suspect]
     Indication: PRURITUS
     Dosage: 6-3-2 TABS ORAL; 6 TABS ORAL; 3 TABS ORA; 2 TABS ORAL
     Route: 048
     Dates: start: 20050211, end: 20050308
  3. CELESTAMINE TAB [Suspect]
     Indication: PRURITUS
     Dosage: 6-3-2 TABS ORAL; 6 TABS ORAL; 3 TABS ORA; 2 TABS ORAL
     Route: 048
     Dates: start: 20050206
  4. CELESTAMINE TAB [Suspect]
     Indication: PRURITUS
     Dosage: 6-3-2 TABS ORAL; 6 TABS ORAL; 3 TABS ORA; 2 TABS ORAL
     Route: 048
     Dates: start: 20050309
  5. METHYCOBAL TABLETS [Concomitant]
  6. MEXITIL [Concomitant]
  7. RENAGEL (SEVELAMER HCL) TABLETS [Concomitant]
  8. AMLODIPINE BESILATE TABLETS [Concomitant]
  9. TAKEPRON (LANSOPRAZOLE) [Concomitant]
  10. ALFAROL [Concomitant]
  11. MICARDIS [Concomitant]

REACTIONS (3)
  - ABNORMAL BEHAVIOUR [None]
  - HALLUCINATION [None]
  - INCOHERENT [None]
